FAERS Safety Report 6486379-8 (Version None)
Quarter: 2009Q4

REPORT INFORMATION
  Report Type: 
  Country: None (occurrence: None)
  Receive Date: 20091210
  Receipt Date: 20091202
  Transmission Date: 20100525
  Serious: Yes (Life-Threatening, Hospitalization)
  Sender: FDA-Public Use
  Company Number: US-BIOGENIDEC-2009BI024254

PATIENT
  Age: 36 Year
  Sex: Female

DRUGS (9)
  1. TYSABRI [Suspect]
     Indication: MULTIPLE SCLEROSIS
     Route: 042
     Dates: start: 20070228
  2. OXYCONTIN [Concomitant]
     Indication: PAIN
     Route: 048
  3. OXYCODONE HCL [Concomitant]
     Indication: PAIN
     Route: 048
  4. DURAGESIC-100 [Concomitant]
     Indication: PAIN
     Route: 062
  5. SONATA [Concomitant]
     Indication: INSOMNIA
  6. XANAX [Concomitant]
     Indication: ANXIETY
     Route: 048
  7. KLONOPIN [Concomitant]
     Indication: ANXIETY
     Route: 048
  8. LORAZEPAM [Concomitant]
     Indication: ANXIETY
     Route: 048
  9. PRISTIQ [Concomitant]
     Indication: DEPRESSION
     Route: 048
     Dates: start: 20090601

REACTIONS (2)
  - RENAL FAILURE ACUTE [None]
  - SUICIDE ATTEMPT [None]
